FAERS Safety Report 6720112-7 (Version None)
Quarter: 2010Q2

REPORT INFORMATION
  Report Type: 
  Country: None (occurrence: None)
  Receive Date: 20100511
  Receipt Date: 20100503
  Transmission Date: 20101027
  Serious: Yes (Hospitalization, Other)
  Sender: FDA-Public Use
  Company Number: US-ABBOTT-10P-163-0642398-00

PATIENT
  Sex: Male
  Weight: 81.72 kg

DRUGS (6)
  1. LUPRON DEPOT [Suspect]
     Indication: PROSTATE CANCER
     Dates: start: 20000101
  2. COUMADIN [Concomitant]
     Indication: HEART VALVE REPLACEMENT
     Dosage: 2 DOSES
     Dates: start: 20000101
  3. LIPITOR [Concomitant]
     Indication: BLOOD CHOLESTEROL
  4. GLYBURIDE [Concomitant]
     Indication: DIABETES MELLITUS
     Dates: start: 20090101
  5. UNKNOWN DRUG [Concomitant]
     Indication: DRUG USE FOR UNKNOWN INDICATION
  6. UNKNOWN DRUG [Concomitant]

REACTIONS (5)
  - AMNESIA [None]
  - DIABETES MELLITUS [None]
  - DIVERTICULITIS [None]
  - HAEMORRHAGE [None]
  - WEIGHT INCREASED [None]
